FAERS Safety Report 8544284-7 (Version None)
Quarter: 2012Q3

REPORT INFORMATION
  Report Type: 
  Country: None (occurrence: None)
  Receive Date: 20120727
  Receipt Date: 20120723
  Transmission Date: 20120928
  Serious: Yes (Death, Hospitalization, Other)
  Sender: FDA-Public Use
  Company Number: CA-TEVA-350146USA

PATIENT
  Age: 27 Year
  Sex: Female

DRUGS (1)
  1. PROPOFOL [Suspect]
     Indication: STATUS EPILEPTICUS
     Dosage: 13 MG/KG/HOUR
     Route: 065

REACTIONS (3)
  - GENE MUTATION [None]
  - PROPOFOL INFUSION SYNDROME [None]
  - DEATH [None]
